FAERS Safety Report 9338573 (Version 5)
Quarter: 2015Q3

REPORT INFORMATION
  Report Type: Report from Study
  Country: FR (occurrence: FR)
  Receive Date: 20130610
  Receipt Date: 20150824
  Transmission Date: 20151125
  Serious: Yes (Death, Life-Threatening, Hospitalization)
  Sender: FDA-Public Use
  Company Number: FR-ROCHE-1231136

PATIENT
  Age: 49 Year
  Sex: Female
  Weight: 80 kg

DRUGS (9)
  1. ACTONEL [Concomitant]
     Active Substance: RISEDRONATE SODIUM
     Route: 048
     Dates: end: 201206
  2. DAFALGAN [Concomitant]
     Active Substance: ACETAMINOPHEN
     Route: 048
     Dates: end: 201206
  3. BEVACIZUMAB [Suspect]
     Active Substance: BEVACIZUMAB
     Indication: BRAIN NEOPLASM MALIGNANT
     Dosage: ON 16/MAY/2013, LAST DOSE PRIOR TO SAE.
     Route: 042
     Dates: start: 20120121, end: 20130516
  4. CALCIDOSE VITAMINE D [Concomitant]
     Active Substance: CALCIUM\CHOLECALCIFEROL
     Dosage: CALCIUM 500 MG/CALCIFEROL 400 IUX 2/DAY
     Route: 048
     Dates: end: 201206
  5. VIMPAT [Concomitant]
     Active Substance: LACOSAMIDE
     Route: 048
     Dates: end: 20130411
  6. MEDROL [Concomitant]
     Active Substance: METHYLPREDNISOLONE
     Route: 048
     Dates: end: 201206
  7. KEPPRA [Concomitant]
     Active Substance: LEVETIRACETAM
     Route: 048
     Dates: end: 201302
  8. DIFFU K [Concomitant]
     Active Substance: POTASSIUM CHLORIDE
     Route: 048
  9. PRETERAX [Concomitant]
     Active Substance: INDAPAMIDE\PERINDOPRIL
     Dosage: DOSE REPORTED AS 2,510,625 MG
     Route: 065
     Dates: end: 20130109

REACTIONS (3)
  - Myocardial infarction [Fatal]
  - Oedema peripheral [Recovered/Resolved]
  - Hypokalaemia [Recovered/Resolved]

NARRATIVE: CASE EVENT DATE: 20130515
